FAERS Safety Report 16458371 (Version 8)
Quarter: 2021Q1

REPORT INFORMATION
  Report Type: Report from Study
  Country: None (occurrence: US)
  Receive Date: 20190620
  Receipt Date: 20210115
  Transmission Date: 20210419
  Serious: Yes (Other)
  Sender: FDA-Public Use
  Company Number: US-ABBVIE-19K-163-2823754-00

PATIENT
  Sex: Male

DRUGS (4)
  1. PREDNISONE. [Concomitant]
     Active Substance: PREDNISONE
     Indication: PRODUCT USED FOR UNKNOWN INDICATION
  2. HUMIRA [Suspect]
     Active Substance: ADALIMUMAB
     Indication: CROHN^S DISEASE
     Route: 058
  3. HUMIRA [Suspect]
     Active Substance: ADALIMUMAB
     Route: 058
  4. HUMIRA [Suspect]
     Active Substance: ADALIMUMAB
     Indication: CROHN^S DISEASE
     Dosage: CF
     Route: 058

REACTIONS (12)
  - Crohn^s disease [Unknown]
  - Gastrointestinal obstruction [Recovering/Resolving]
  - Frequent bowel movements [Not Recovered/Not Resolved]
  - Thrombosis [Unknown]
  - Anorectal swelling [Unknown]
  - Pain [Recovering/Resolving]
  - Erectile dysfunction [Not Recovered/Not Resolved]
  - General physical health deterioration [Unknown]
  - Pain in extremity [Unknown]
  - Carpal tunnel syndrome [Unknown]
  - Drug ineffective [Not Recovered/Not Resolved]
  - Haemorrhage [Recovering/Resolving]
